FAERS Safety Report 8821874 (Version 2)
Quarter: 2012Q4

REPORT INFORMATION
  Report Type: 
  Country: US (occurrence: US)
  Receive Date: 20121002
  Receipt Date: 20121105
  Transmission Date: 20130627
  Serious: Yes (Other)
  Sender: FDA-Public Use
  Company Number: US-PFIZER INC-2012243248

PATIENT
  Sex: Female

DRUGS (5)
  1. EFFEXOR XR [Suspect]
     Indication: ANXIETY
     Dosage: 150 mg, 1x/day
     Route: 048
     Dates: start: 2002
  2. EFFEXOR XR [Suspect]
     Indication: DEPRESSION
  3. GEODON [Suspect]
     Indication: PARANOIA
     Dosage: 80mg morning, 80mg afternoon and 240mg night
     Route: 048
  4. GEODON [Suspect]
     Indication: PANIC ATTACK
  5. GEODON [Suspect]
     Indication: PSYCHOSIS

REACTIONS (4)
  - Intentional drug misuse [Unknown]
  - Paranoia [Unknown]
  - Psychotic disorder [Unknown]
  - Discomfort [Unknown]
